FAERS Safety Report 7134436-5 (Version None)
Quarter: 2010Q4

REPORT INFORMATION
  Report Type: 
  Country: None (occurrence: None)
  Receive Date: 20101203
  Receipt Date: 20101130
  Transmission Date: 20110411
  Serious: Yes (Death, Other)
  Sender: FDA-Public Use
  Company Number: PHHY2009JP24814

PATIENT
  Sex: Male
  Weight: 70 kg

DRUGS (11)
  1. SIMULECT [Suspect]
     Indication: RENAL TRANSPLANT
     Dosage: 20 MG, ONCE/SINGLE
     Route: 042
     Dates: start: 20050413, end: 20050413
  2. SIMULECT [Suspect]
     Dosage: 20 MG, ONCE/SINGLE
     Route: 042
     Dates: start: 20050417, end: 20050417
  3. NEORAL [Concomitant]
     Indication: RENAL TRANSPLANT
     Dosage: 250 MG
     Route: 048
     Dates: start: 20050411
  4. CELLCEPT [Concomitant]
     Indication: RENAL TRANSPLANT
     Dosage: 2000 MG
     Route: 048
     Dates: start: 20050411
  5. MEDROL [Concomitant]
     Indication: RENAL TRANSPLANT
     Dosage: 20 MG
     Route: 048
     Dates: start: 20050430, end: 20050830
  6. TAKEPRON [Concomitant]
     Indication: GASTRIC ULCER
     Dosage: 30 MG
     Route: 048
     Dates: start: 20050417
  7. TANADOPA [Concomitant]
     Indication: HYPOTENSION
     Dosage: 2250 MG
     Route: 048
     Dates: start: 20050501
  8. ETILEFRINE HYDROCHLORIDE [Concomitant]
     Indication: HYPOTENSION
     Dosage: 6 DF
     Route: 048
     Dates: start: 20050515
  9. THYRADIN S [Concomitant]
     Indication: HYPOTHYROIDISM
     Dosage: 75 MG
     Route: 048
     Dates: start: 20050513
  10. DIGOSIN [Concomitant]
     Indication: ARRHYTHMIA
     Dosage: 0.125 MG
     Route: 048
     Dates: start: 20050405, end: 20050716
  11. SOLU-MEDROL [Suspect]
     Indication: RENAL TRANSPLANT
     Dosage: UNK
     Dates: start: 20050413, end: 20090429

REACTIONS (6)
  - ARRHYTHMIA [None]
  - BLOOD CREATININE INCREASED [None]
  - CARDIAC ARREST [None]
  - HYPOTHYROIDISM [None]
  - KIDNEY TRANSPLANT REJECTION [None]
  - RESUSCITATION [None]
